FAERS Safety Report 11491621 (Version 2)
Quarter: 2015Q4

REPORT INFORMATION
  Report Type: Spontaneous
  Country: JP (occurrence: JP)
  Receive Date: 20150910
  Receipt Date: 20151009
  Transmission Date: 20160304
  Serious: Yes (Hospitalization)
  Sender: FDA-Public Use
  Company Number: PHJP2015JP015301

PATIENT
  Age: 90 Year
  Sex: Female

DRUGS (1)
  1. RIVASTIGMINE. [Suspect]
     Active Substance: RIVASTIGMINE
     Indication: DEMENTIA ALZHEIMER^S TYPE
     Dosage: 6.9 MG, QD (13.5 MG RIVASTIGMINE BASE (PATCH 7.5 (CM2))
     Route: 062

REACTIONS (3)
  - Dehydration [Recovering/Resolving]
  - Nausea [Recovered/Resolved]
  - Heat illness [Unknown]
